FAERS Safety Report 4889973-0 (Version None)
Quarter: 2006Q1

REPORT INFORMATION
  Report Type: 
  Country: None (occurrence: None)
  Receive Date: 20060123
  Receipt Date: 20060123
  Transmission Date: 20060701
  Serious: Yes (Disabling)
  Sender: FDA-Public Use
  Company Number: None

PATIENT
  Age: 16 Year
  Sex: Male
  Weight: 77.1115 kg

DRUGS (1)
  1. ACCUTANE [Suspect]
     Indication: ACNE
     Dates: start: 20040801, end: 20050101

REACTIONS (4)
  - ARTHROPATHY [None]
  - DEPRESSION [None]
  - SPORTS INJURY [None]
  - SUICIDAL IDEATION [None]
